FAERS Safety Report 25040543 (Version 1)
Quarter: 2025Q1

REPORT INFORMATION
  Report Type: Spontaneous
  Country: US (occurrence: None)
  Receive Date: 20250304
  Receipt Date: 20250304
  Transmission Date: 20250409
  Serious: Yes (Death)
  Sender: FDA-CTU
  Company Number: None

PATIENT
  Age: 73 Year
  Sex: Male

DRUGS (8)
  1. ACTEMRA ACTPEN [Suspect]
     Active Substance: TOCILIZUMAB
     Indication: Giant cell arteritis
     Route: 058
     Dates: start: 20210303, end: 20250129
  2. CARVEDILOL 3.125MG TABLETS [Concomitant]
  3. ANORO ELLI PTA 62.5-25 ORAL INH(30S) [Concomitant]
  4. ATORVASTATIN CALCIUM [Concomitant]
     Active Substance: ATORVASTATIN CALCIUM
  5. CLOPIDOGREL 75MG TABLETS [Concomitant]
  6. DULCOLAX 5MG EC TABLETS [Concomitant]
  7. METAMUCIL ORIGINAL REG POW 822GM [Concomitant]
  8. MULTIVITAMIN ADULTS TABLETS [Concomitant]

REACTIONS (1)
  - Death [None]

NARRATIVE: CASE EVENT DATE: 20250304
